FAERS Safety Report 4793821-7 (Version None)
Quarter: 2005Q4

REPORT INFORMATION
  Report Type: 
  Country: None (occurrence: None)
  Receive Date: 20051006
  Receipt Date: 20051006
  Transmission Date: 20060501
  Serious: Yes (Hospitalization)
  Sender: FDA-Public Use
  Company Number: None

PATIENT
  Age: 86 Year
  Sex: Female

DRUGS (2)
  1. WARFARIN    1MG [Suspect]
     Indication: AORTIC VALVE REPLACEMENT
     Dosage: 1MG;2MG   MTWFS; THS   PO
     Route: 048
  2. ASPIRIN [Suspect]
     Indication: CEREBROVASCULAR ACCIDENT
     Dosage: 81MG   DAILY   PO
     Route: 048

REACTIONS (3)
  - ABDOMINAL PAIN [None]
  - MELAENA [None]
  - NAUSEA [None]
